FAERS Safety Report 24741555 (Version 1)
Quarter: 2024Q4

REPORT INFORMATION
  Report Type: Report from Study
  Country: US (occurrence: US)
  Receive Date: 20241217
  Receipt Date: 20241217
  Transmission Date: 20250115
  Serious: Yes (Other)
  Sender: ABBVIE
  Company Number: US-ABBVIE-6043361

PATIENT
  Sex: Male
  Weight: 90 kg

DRUGS (1)
  1. CREON [Suspect]
     Active Substance: PANCRELIPASE AMYLASE\PANCRELIPASE LIPASE\PANCRELIPASE PROTEASE
     Indication: Pancreatic failure
     Dosage: FORM STRENGTH: 36000 UNIT?FREQUENCY TEXT: 2 CAPSULE PER MEAL 1 CAPSULE PER SNACK
     Route: 048
     Dates: start: 2016

REACTIONS (1)
  - Cataract [Recovered/Resolved]
